FAERS Safety Report 8267415-5 (Version None)
Quarter: 2012Q2

REPORT INFORMATION
  Report Type: 
  Country: None (occurrence: None)
  Receive Date: 20120409
  Receipt Date: 20120401
  Transmission Date: 20120825
  Serious: Yes (Hospitalization, Other)
  Sender: FDA-Public Use
  Company Number: PHHY2012DE029100

PATIENT
  Weight: 86 kg

DRUGS (14)
  1. LOCHOLEST [Suspect]
     Dosage: 1 DF QD
     Dates: start: 20080217
  2. PENTAERYTHRITOL TETRANITRATE [Suspect]
     Indication: CORONARY ARTERY DISEASE
     Dosage: 1 DF QD
     Dates: start: 20080625, end: 20090108
  3. NITRATES [Concomitant]
  4. TAMPYRINE [Concomitant]
  5. MOXONIDINE [Suspect]
     Dosage: 1 DF QD
     Route: 048
     Dates: start: 20080509, end: 20090108
  6. PLATELET AGGREGATION INHIBITORS [Concomitant]
  7. BISOPROLOL FUMARATE [Suspect]
     Indication: HYPERTENSION
     Dosage: 1 DF QD
     Route: 048
     Dates: start: 20080117
  8. ANTICOAGULANTS [Concomitant]
  9. DIURETICS [Concomitant]
  10. ORAL ANTIDIABETICS [Concomitant]
  11. ENALAPRIL MALEATE [Suspect]
     Indication: HYPERTENSION
     Dosage: 1 DF QD
     Route: 048
     Dates: start: 20070822, end: 20090108
  12. AMLODIPINE [Suspect]
     Indication: HYPERTENSION
     Dosage: 1 DF QD
     Route: 048
     Dates: start: 20061015
  13. CORONARY VASODILATORS [Concomitant]
     Dosage: UNK
     Dates: end: 20110610
  14. ASPIRIN [Concomitant]
     Indication: COAGULOPATHY
     Dosage: 1 DF QD
     Route: 048
     Dates: start: 20070328

REACTIONS (3)
  - BLOOD PRESSURE INCREASED [None]
  - ACUTE CORONARY SYNDROME [None]
  - DYSPNOEA [None]
